FAERS Safety Report 4599402-2 (Version None)
Quarter: 2005Q1

REPORT INFORMATION
  Report Type: 
  Country: None (occurrence: None)
  Receive Date: 20050127
  Receipt Date: 20041012
  Transmission Date: 20050727
  Serious: No
  Sender: FDA-Public Use
  Company Number: USA041080875

PATIENT
  Sex: Female

DRUGS (2)
  1. STRATTERA [Suspect]
  2. LEXAPRO [Concomitant]

REACTIONS (3)
  - DRUG INTERACTION [None]
  - INFECTION [None]
  - PSYCHOTIC DISORDER [None]
